FAERS Safety Report 8960805 (Version 2)
Quarter: 2012Q4

REPORT INFORMATION
  Report Type: 
  Country: MX (occurrence: MX)
  Receive Date: 20121213
  Receipt Date: 20121219
  Transmission Date: 20130627
  Serious: Yes (Other)
  Sender: FDA-Public Use
  Company Number: PHHY2012MX114000

PATIENT
  Age: 54 Year
  Sex: Female

DRUGS (2)
  1. SANDIMMUN NEORAL [Suspect]
     Indication: PSORIASIS
     Dosage: 25 mg, BID
     Route: 048
     Dates: start: 201210
  2. SANDIMMUN NEORAL [Suspect]
     Dosage: 50 mg, BID
     Route: 048
     Dates: start: 20121203, end: 20121214

REACTIONS (6)
  - Skin lesion [Recovered/Resolved]
  - Lymphadenopathy [Not Recovered/Not Resolved]
  - Skin exfoliation [Recovered/Resolved]
  - Erythema [Recovered/Resolved]
  - Skin ulcer [Recovered/Resolved]
  - Skin irritation [Recovered/Resolved]
